FAERS Safety Report 16559653 (Version 1)
Quarter: 2019Q3

REPORT INFORMATION
  Report Type: Spontaneous
  Country: DE (occurrence: DE)
  Receive Date: 20190711
  Receipt Date: 20190711
  Transmission Date: 20191004
  Serious: Yes (Life-Threatening, Hospitalization)
  Sender: FDA-Public Use
  Company Number: DE-SA-2019SA181675

PATIENT
  Age: 67 Year
  Sex: Female

DRUGS (17)
  1. SITAGLIPTIN [Suspect]
     Active Substance: SITAGLIPTIN
     Dosage: 25 MG, 0-1-0-0, TABLETTEN
     Route: 048
  2. LORATADINE. [Concomitant]
     Active Substance: LORATADINE
     Dosage: 10 MG, 1-0-0-0, TABLETTEN
     Route: 048
  3. ASS-RATIOPHARM [Concomitant]
     Active Substance: ASPIRIN
     Dosage: 100 MG, 1-0-0-0, TABLETTEN
     Route: 048
  4. L-THYROXIN HENNING [Concomitant]
     Active Substance: LEVOTHYROXINE SODIUM
     Dosage: 75 ?G, 1-0-0-0, TABLETTEN
     Route: 048
  5. CIPRAMIL [CITALOPRAM HYDROBROMIDE] [Concomitant]
     Active Substance: CITALOPRAM HYDROBROMIDE
     Dosage: 40 MG, 1-0-0-0, TABLETTEN
     Route: 048
  6. ULTIBRO BREEZHALER [Concomitant]
     Active Substance: GLYCOPYRRONIUM\INDACATEROL
     Dosage: 85|43 ?G, 1-0-0-0, KAPSELN
     Route: 055
  7. FENTANYL TRANSDERMAL SYSTEM [Concomitant]
     Active Substance: FENTANYL
     Route: 062
  8. LANTUS [Suspect]
     Active Substance: INSULIN GLARGINE
     Dosage: 1 IE, 10-0-14-0, INJEKTIONS-/INFUSIONSL?SUNG
     Route: 058
  9. ZOPICLON 1A PHARMA [Concomitant]
     Dosage: 7.5 MG, 0-0-0-0.5, TABLETTEN
     Route: 048
  10. EXFORGE HCT [Concomitant]
     Active Substance: AMLODIPINE BESYLATE\HYDROCHLOROTHIAZIDE\VALSARTAN
     Dosage: 160|5|12.5 MG, 1-0-1-0, TABLETTEN
     Route: 048
  11. ATORVASTATIN 1A PHARMA [Concomitant]
     Active Substance: ATORVASTATIN
     Route: 048
  12. NOVAMINSULFON 1 A PHARMA [Concomitant]
     Route: 048
  13. APIDRA [Suspect]
     Active Substance: INSULIN GLULISINE
     Dosage: 100 IE/ML, BZ, INJEKTIONS-/INFUSIONSL?SUNG
     Route: 058
  14. TORASEMID [Concomitant]
     Active Substance: TORSEMIDE
     Dosage: 10 MG, 2-0-0-0, TABLETTEN
     Route: 048
  15. NEBIVOLOL. [Concomitant]
     Active Substance: NEBIVOLOL
     Dosage: 5 MG, 1-0-1-0,
     Route: 048
  16. PANTOPRAZOLE SODIUM. [Concomitant]
     Active Substance: PANTOPRAZOLE SODIUM
     Dosage: 40 MG, 1-0-1-0, TABLETTEN
     Route: 048
  17. CALCITRIOL. [Concomitant]
     Active Substance: CALCITRIOL
     Dosage: 0.5 ?G, 1-0-0-0, KAPSELN
     Route: 048

REACTIONS (9)
  - Epigastric discomfort [Unknown]
  - Weight increased [Unknown]
  - Accidental overdose [Unknown]
  - Hypoglycaemia [Unknown]
  - Diabetic coma [Unknown]
  - Loss of consciousness [Unknown]
  - Dyspnoea [Unknown]
  - Haematoma [Unknown]
  - General physical health deterioration [Unknown]
